FAERS Safety Report 17074550 (Version 1)
Quarter: 2019Q4

REPORT INFORMATION
  Report Type: Report from Study
  Country: ID (occurrence: ID)
  Receive Date: 20191126
  Receipt Date: 20191126
  Transmission Date: 20200122
  Serious: Yes (Death)
  Sender: FDA-Public Use
  Company Number: ID-ASTRAZENECA-2019SF67566

PATIENT
  Sex: Male

DRUGS (3)
  1. HERBAL MEDICINE [Concomitant]
     Indication: PAIN
     Route: 065
  2. TAGRISSO [Suspect]
     Active Substance: OSIMERTINIB
     Indication: NON-SMALL CELL LUNG CANCER METASTATIC
     Route: 048
     Dates: start: 20191117
  3. GEFTINAT [Concomitant]
     Indication: PAIN

REACTIONS (1)
  - Death [Fatal]
